FAERS Safety Report 5883463-4 (Version None)
Quarter: 2008Q3

REPORT INFORMATION
  Report Type: 
  Country: None (occurrence: None)
  Receive Date: 20080915
  Receipt Date: 20080903
  Transmission Date: 20090109
  Serious: Yes (Other)
  Sender: FDA-Public Use
  Company Number: US-ROCHE-574809

PATIENT
  Age: 72 Year
  Sex: Female

DRUGS (3)
  1. BONIVA [Suspect]
     Indication: OSTEOPOROSIS
     Route: 048
     Dates: start: 20080416, end: 20080604
  2. LIPITOR [Concomitant]
     Dosage: FORM: PILL
     Route: 048
  3. LISINOPRIL [Concomitant]
     Dosage: FORM: PILL, DOSE: 10/12.5, FREQUENCY: QD
     Route: 048

REACTIONS (4)
  - HIATUS HERNIA [None]
  - MELAENA [None]
  - OCCULT BLOOD POSITIVE [None]
  - OESOPHAGEAL STENOSIS [None]
